FAERS Safety Report 6631343-9 (Version None)
Quarter: 2010Q1

REPORT INFORMATION
  Report Type: 
  Country: None (occurrence: None)
  Receive Date: 20100312
  Receipt Date: 20100311
  Transmission Date: 20100710
  Serious: Yes (Death, Hospitalization, Other)
  Sender: FDA-Public Use
  Company Number: US-ASTRAZENECA-2007UW03709

PATIENT
  Age: 25903 Day
  Sex: Female
  Weight: 75.7 kg

DRUGS (41)
  1. SEROQUEL [Suspect]
     Indication: ANXIETY
     Route: 048
     Dates: start: 20020901, end: 20040501
  2. SEROQUEL [Suspect]
     Route: 048
     Dates: start: 20020828
  3. SENOKOT [Concomitant]
  4. DULCOLAX [Concomitant]
  5. PREVACID [Concomitant]
  6. NORVASC [Concomitant]
  7. CYMBALTA [Concomitant]
  8. METFORMIN [Concomitant]
  9. HYDROCODONE [Concomitant]
  10. VITAMIN B-12 [Concomitant]
  11. ACCUPRIL [Concomitant]
  12. LOPID [Concomitant]
  13. RESTORIL [Concomitant]
  14. AMLODIPINE [Concomitant]
  15. FLUOXETINE HCL [Concomitant]
  16. PANTOPRAZOLE [Concomitant]
  17. LORAZEPAM [Concomitant]
  18. OXYCODONE [Concomitant]
  19. COUMADIN [Concomitant]
  20. INSULIN HUMAN REGULAR [Concomitant]
  21. TRICOR [Concomitant]
  22. KLONOPIN [Concomitant]
  23. PRANDIN [Concomitant]
  24. LOMOTIL [Concomitant]
  25. CEFAZOLIN [Concomitant]
  26. REMERON [Concomitant]
  27. LEXAPRO [Concomitant]
  28. LUNESTA [Concomitant]
  29. VERAPAMIL [Concomitant]
  30. CALCIUM [Concomitant]
  31. FLUTICASONE [Concomitant]
  32. IBUPROFEN [Concomitant]
  33. WELLBUTRIN [Concomitant]
  34. IMODIUM [Concomitant]
  35. HYDROCHLOROTHIAZIDE [Concomitant]
  36. CLARITIN [Concomitant]
  37. ENALAPRIL MALEATE [Concomitant]
  38. SIMVASTATIN [Concomitant]
  39. AMBIEN [Concomitant]
  40. VICODIN [Concomitant]
  41. KEFLEX [Concomitant]

REACTIONS (50)
  - ABDOMINAL PAIN [None]
  - ANORECTAL DISCOMFORT [None]
  - ANXIETY [None]
  - ANXIETY DISORDER [None]
  - ARTHRALGIA [None]
  - ARTHRITIS [None]
  - BACK PAIN [None]
  - BLOOD GLUCOSE ABNORMAL [None]
  - BONE NEOPLASM MALIGNANT [None]
  - BONE PAIN [None]
  - CHEST PAIN [None]
  - DECREASED APPETITE [None]
  - DEPRESSION [None]
  - DIARRHOEA [None]
  - DIVERTICULITIS [None]
  - DIZZINESS [None]
  - DYSPHORIA [None]
  - EXTERNAL EAR CELLULITIS [None]
  - FOOD INTOLERANCE [None]
  - GASTRIC ULCER [None]
  - HALLUCINATION [None]
  - HYPERGLYCAEMIA [None]
  - HYPERLIPIDAEMIA [None]
  - HYPERTENSION [None]
  - HYPERTRIGLYCERIDAEMIA [None]
  - INSOMNIA [None]
  - IRRITABLE BOWEL SYNDROME [None]
  - METASTATIC MALIGNANT MELANOMA [None]
  - MICTURITION URGENCY [None]
  - MUSCLE SPASMS [None]
  - MYALGIA [None]
  - NASOPHARYNGITIS [None]
  - NAUSEA [None]
  - NIGHT SWEATS [None]
  - ORTHOSTATIC HYPERTENSION [None]
  - OSTEOPOROSIS [None]
  - PEPTIC ULCER [None]
  - POLLAKIURIA [None]
  - POST PROCEDURAL HAEMORRHAGE [None]
  - RASH [None]
  - RECTAL HAEMORRHAGE [None]
  - RHINITIS ALLERGIC [None]
  - SCOLIOSIS [None]
  - SLEEP DISORDER [None]
  - SUICIDAL IDEATION [None]
  - THYROID DISORDER [None]
  - TREMOR [None]
  - TYPE 2 DIABETES MELLITUS [None]
  - URINARY TRACT INFECTION [None]
  - WEIGHT INCREASED [None]
